FAERS Safety Report 12122291 (Version 2)
Quarter: 2016Q1

REPORT INFORMATION
  Report Type: Report from Study
  Country: NL (occurrence: NL)
  Receive Date: 20160226
  Receipt Date: 20160307
  Transmission Date: 20160526
  Serious: Yes (Hospitalization)
  Sender: FDA-Public Use
  Company Number: PHHY2016NL023800

PATIENT
  Age: 59 Year
  Sex: Male

DRUGS (10)
  1. TASIGNA [Suspect]
     Active Substance: NILOTINIB
     Dosage: 200 MG, BID
     Route: 065
     Dates: start: 20150920, end: 20150930
  2. COTRIMOXAZOLE [Concomitant]
     Active Substance: SULFAMETHOXAZOLE\TRIMETHOPRIM
     Indication: PROPHYLAXIS
     Dosage: 480 MG, UNK
     Route: 048
  3. TASIGNA [Suspect]
     Active Substance: NILOTINIB
     Dosage: 400 MG, QD
     Route: 065
     Dates: start: 20150930
  4. CYCLOSPORIN [Concomitant]
     Active Substance: CYCLOSPORINE
     Indication: GRAFT VERSUS HOST DISEASE
     Dosage: 300 MG, UNK
     Route: 048
  5. PREDNISOLONE. [Concomitant]
     Active Substance: PREDNISOLONE
     Indication: GRAFT VERSUS HOST DISEASE
     Dosage: 10 MG, UNK
     Route: 048
  6. VALACICLOVIR [Concomitant]
     Active Substance: VALACYCLOVIR HYDROCHLORIDE
     Indication: PRODUCT USED FOR UNKNOWN INDICATION
     Dosage: 1000 MG, UNK
     Route: 048
  7. RITUXIMAB [Suspect]
     Active Substance: RITUXIMAB
     Indication: CHRONIC GRAFT VERSUS HOST DISEASE
     Dosage: 375 MG/M2, UNK
     Route: 042
     Dates: start: 20150618
  8. CELLCEPT [Concomitant]
     Active Substance: MYCOPHENOLATE MOFETIL\MYCOPHENOLATE MOFETIL HYDROCHLORIDE
     Indication: GRAFT VERSUS HOST DISEASE
     Dosage: 2000 MG, UNK
     Route: 048
  9. TASIGNA [Suspect]
     Active Substance: NILOTINIB
     Indication: CHRONIC GRAFT VERSUS HOST DISEASE
     Dosage: 300 MG, BID
     Route: 065
     Dates: start: 20150803, end: 20150831
  10. FLUCONAZOLE. [Concomitant]
     Active Substance: FLUCONAZOLE
     Indication: PROPHYLAXIS
     Dosage: 150 MG, UNK
     Route: 048

REACTIONS (8)
  - Pyrexia [Unknown]
  - Fatigue [Unknown]
  - Influenza [Unknown]
  - Corona virus infection [Unknown]
  - Product use issue [Unknown]
  - Lower respiratory tract infection [Unknown]
  - Cough [Unknown]
  - Immunodeficiency [Unknown]

NARRATIVE: CASE EVENT DATE: 20150831
